FAERS Safety Report 9257593 (Version 1)
Quarter: 2013Q1

REPORT INFORMATION
  Report Type: Spontaneous
  Country: US (occurrence: None)
  Receive Date: 20121212
  Receipt Date: 20121212
  Transmission Date: 20140127
  Serious: No
  Sender: FDA-Public Use
  Company Number: 1208USA011593

PATIENT
  Age: 57 Year
  Sex: Female

DRUGS (3)
  1. VICTRELIS (BOCEPREVIR) CAPSULE, 800MG [Suspect]
     Dosage: UNK, ORAL
     Route: 048
     Dates: start: 201207
  2. PEGASYS (PEGINTERFERON ALFA 2A) [Suspect]
  3. RIBASPHERE (RIBAVIRIN) [Suspect]

REACTIONS (1)
  - Headache [None]
